FAERS Safety Report 10462193 (Version 1)
Quarter: 2014Q3

REPORT INFORMATION
  Report Type: Spontaneous
  Country: US (occurrence: US)
  Receive Date: 20140918
  Receipt Date: 20140918
  Transmission Date: 20150326
  Serious: Yes (Hospitalization)
  Sender: FDA-Public Use
  Company Number: US-GLAXOSMITHKLINE-A1089028A

PATIENT
  Age: 89 Year
  Sex: Male

DRUGS (14)
  1. PEPCID [Concomitant]
     Active Substance: FAMOTIDINE
  2. LEVOXYL [Concomitant]
     Active Substance: LEVOTHYROXINE SODIUM
  3. SINGULAIR [Concomitant]
     Active Substance: MONTELUKAST SODIUM
  4. SPIRIVA [Concomitant]
     Active Substance: TIOTROPIUM BROMIDE MONOHYDRATE
  5. PLAVIX [Concomitant]
     Active Substance: CLOPIDOGREL BISULFATE
  6. LEXAPRO [Concomitant]
     Active Substance: ESCITALOPRAM OXALATE
  7. CALCIUM PLUS D [Concomitant]
     Active Substance: CALCIUM\VITAMIN D
  8. NASONEX [Concomitant]
     Active Substance: MOMETASONE FUROATE
  9. CRESTOR [Concomitant]
     Active Substance: ROSUVASTATIN CALCIUM
  10. CENTRUM SILVER [Concomitant]
     Active Substance: VITAMINS
  11. IRON [Concomitant]
     Active Substance: IRON
  12. ADVAIR HFA [Suspect]
     Active Substance: FLUTICASONE PROPIONATE\SALMETEROL XINAFOATE
     Indication: CHRONIC OBSTRUCTIVE PULMONARY DISEASE
     Dosage: 1PUFF TWICE PER DAY
     Route: 055
  13. DEPLIN [Concomitant]
     Active Substance: LEVOMEFOLATE CALCIUM
  14. LASIX [Concomitant]
     Active Substance: FUROSEMIDE

REACTIONS (4)
  - Colitis [Recovering/Resolving]
  - Diarrhoea [Recovering/Resolving]
  - Head injury [Recovering/Resolving]
  - Fall [Recovering/Resolving]

NARRATIVE: CASE EVENT DATE: 2014
